FAERS Safety Report 7373224-1 (Version None)
Quarter: 2011Q1

REPORT INFORMATION
  Report Type: 
  Country: None (occurrence: None)
  Receive Date: 20110324
  Receipt Date: 20110322
  Transmission Date: 20110831
  Serious: Yes (Other)
  Sender: FDA-Public Use
  Company Number: JP-CEPHALON-2010004835

PATIENT
  Age: 62 Year
  Sex: Female

DRUGS (6)
  1. MODAFINIL [Suspect]
     Indication: SOMNOLENCE
     Route: 048
  2. ACTOS [Concomitant]
     Dates: start: 20041203
  3. INSULIN [Concomitant]
     Dates: start: 20050115
  4. MODAFINIL [Suspect]
     Route: 048
  5. INSULIN [Concomitant]
     Dates: start: 20050103, end: 20050114
  6. MODAFINIL [Suspect]
     Route: 048

REACTIONS (2)
  - DIABETES MELLITUS [None]
  - DYSKINESIA [None]
